FAERS Safety Report 4333200-X (Version None)
Quarter: 2004Q2

REPORT INFORMATION
  Report Type: 
  Country: None (occurrence: None)
  Receive Date: 20040402
  Receipt Date: 20040216
  Transmission Date: 20050107
  Serious: Yes (Death)
  Sender: FDA-Public Use
  Company Number: F01200400300

PATIENT
  Sex: Female

DRUGS (2)
  1. (OXALIPLATIN) - SOLUTION - UNIT DOSE [Suspect]
     Indication: COLORECTAL CANCER
     Route: 042
     Dates: start: 20030730, end: 20030730
  2. (CAPECITABINE) - TABLET - UNIT DOSE [Suspect]
     Route: 048
     Dates: start: 20030730

REACTIONS (7)
  - BLOOD PRESSURE DECREASED [None]
  - CARDIO-RESPIRATORY ARREST [None]
  - CORONARY ARTERY DISEASE [None]
  - DEPRESSED LEVEL OF CONSCIOUSNESS [None]
  - DIARRHOEA [None]
  - GENERAL PHYSICAL HEALTH DETERIORATION [None]
  - LEFT VENTRICULAR FAILURE [None]
